FAERS Safety Report 7778110-0 (Version None)
Quarter: 2011Q3

REPORT INFORMATION
  Report Type: 
  Country: None (occurrence: None)
  Receive Date: 20110926
  Receipt Date: 20110919
  Transmission Date: 20111222
  Serious: Yes (Hospitalization)
  Sender: FDA-Public Use
  Company Number: US-ALEXION PHARMACEUTICALS INC.-A201101398

PATIENT
  Sex: Male

DRUGS (1)
  1. SOLIRIS [Suspect]
     Indication: PAROXYSMAL NOCTURNAL HAEMOGLOBINURIA
     Route: 042

REACTIONS (5)
  - CONDITION AGGRAVATED [None]
  - CARDIOVASCULAR DISORDER [None]
  - THROMBOCYTOPENIA [None]
  - LUNG DISORDER [None]
  - PAROXYSMAL NOCTURNAL HAEMOGLOBINURIA [None]
